FAERS Safety Report 10655625 (Version 1)
Quarter: 2014Q4

REPORT INFORMATION
  Report Type: Spontaneous
  Country: US (occurrence: None)
  Receive Date: 20141215
  Receipt Date: 20141215
  Transmission Date: 20150529
  Serious: Yes (Hospitalization)
  Sender: FDA-Public Use
  Company Number: None

PATIENT
  Age: 12 Year
  Sex: Female
  Weight: 32.66 kg

DRUGS (1)
  1. ROCEPHIN [Suspect]
     Active Substance: CEFTRIAXONE SODIUM
     Indication: LYME DISEASE
     Dates: start: 20131016, end: 20131101

REACTIONS (6)
  - Demyelination [None]
  - Fatigue [None]
  - Headache [None]
  - Blindness [None]
  - Serum sickness [None]
  - Encephalitis autoimmune [None]

NARRATIVE: CASE EVENT DATE: 20131016
